FAERS Safety Report 19512266 (Version 1)
Quarter: 2021Q3

REPORT INFORMATION
  Report Type: Spontaneous
  Country: US (occurrence: US)
  Receive Date: 20210709
  Receipt Date: 20210709
  Transmission Date: 20211014
  Serious: Yes (Hospitalization)
  Sender: FDA-Public Use
  Company Number: US-ELI_LILLY_AND_COMPANY-US202107000413

PATIENT
  Age: 25 Year
  Sex: Female

DRUGS (2)
  1. ALIMTA [Suspect]
     Active Substance: PEMETREXED DISODIUM
     Indication: THYMOMA
     Dosage: UNK UNK, UNKNOWN
     Route: 042
  2. METFORMIN [Concomitant]
     Active Substance: METFORMIN HYDROCHLORIDE
     Indication: NEOPLASM MALIGNANT

REACTIONS (5)
  - Laboratory test abnormal [Not Recovered/Not Resolved]
  - Off label use [Unknown]
  - Tissue infiltration [Not Recovered/Not Resolved]
  - Thymus disorder [Not Recovered/Not Resolved]
  - Bone pain [Not Recovered/Not Resolved]

NARRATIVE: CASE EVENT DATE: 202106
